FAERS Safety Report 5144679-8 (Version None)
Quarter: 2006Q4

REPORT INFORMATION
  Report Type: 
  Country: None (occurrence: None)
  Receive Date: 20061031
  Receipt Date: 20061019
  Transmission Date: 20070319
  Serious: Yes (Other)
  Sender: FDA-Public Use
  Company Number: 2006SP004905

PATIENT
  Age: 83 Year
  Sex: Male

DRUGS (6)
  1. NASONEX [Suspect]
     Indication: DRUG USE FOR UNKNOWN INDICATION
     Dosage: 1 DF ONCE NAS
     Route: 045
     Dates: start: 20061018, end: 20061018
  2. ALAVERT [Concomitant]
  3. BENADRYL [Concomitant]
  4. ANTIDIABETIC AGENT [Concomitant]
  5. ANTICOAGULANT THERAPY [Concomitant]
  6. ANTI-CHOLESTEROL MEDICATION [Concomitant]

REACTIONS (4)
  - BLOOD PRESSURE INCREASED [None]
  - CHILLS [None]
  - SYNCOPE [None]
  - TREMOR [None]
